FAERS Safety Report 5736782-6 (Version None)
Quarter: 2008Q2

REPORT INFORMATION
  Report Type: 
  Country: None (occurrence: None)
  Receive Date: 20080513
  Receipt Date: 20080502
  Transmission Date: 20081010
  Serious: Yes (Hospitalization)
  Sender: FDA-Public Use
  Company Number: JP-GENENTECH-260493

PATIENT
  Age: 30 Year
  Sex: Male

DRUGS (1)
  1. RITUXAN [Suspect]
     Indication: PROPHYLAXIS AGAINST TRANSPLANT REJECTION
     Dosage: 100 UNK, UNKNOWN
     Route: 065

REACTIONS (1)
  - CYTOMEGALOVIRUS INFECTION [None]
